FAERS Safety Report 13905572 (Version 1)
Quarter: 2017Q3

REPORT INFORMATION
  Report Type: Spontaneous
  Country: MA (occurrence: MA)
  Receive Date: 20170825
  Receipt Date: 20170825
  Transmission Date: 20171127
  Serious: Yes (Death, Other)
  Sender: FDA-Public Use
  Company Number: MA-CASPER PHARMA LLC-2017SEB00385

PATIENT
  Age: 30 Year
  Sex: Male

DRUGS (2)
  1. UNSPECIFIED INSULIN [Concomitant]
     Active Substance: INSULIN NOS
     Indication: DIABETES MELLITUS
     Route: 065
  2. ALLOPURINOL. [Suspect]
     Active Substance: ALLOPURINOL
     Indication: HYPERURICAEMIA
     Dosage: 100 MG, 1X/DAY
     Route: 065

REACTIONS (6)
  - Anaemia [Unknown]
  - Septic shock [Fatal]
  - Hyperleukocytosis [Unknown]
  - Electrolyte imbalance [Unknown]
  - Lymphopenia [Unknown]
  - Toxic epidermal necrolysis [Fatal]
